FAERS Safety Report 5700687-7 (Version None)
Quarter: 2008Q2

REPORT INFORMATION
  Report Type: 
  Country: None (occurrence: None)
  Receive Date: 20080410
  Receipt Date: 20080402
  Transmission Date: 20081010
  Serious: Yes (Hospitalization)
  Sender: FDA-Public Use
  Company Number: US-MERCK-0804USA00945

PATIENT
  Age: 58 Year
  Sex: Male

DRUGS (2)
  1. ZETIA [Suspect]
     Indication: BLOOD CHOLESTEROL INCREASED
     Route: 048
     Dates: start: 20050401
  2. NIASPAN [Concomitant]
     Route: 065
     Dates: start: 20080301

REACTIONS (1)
  - CORONARY ARTERY OCCLUSION [None]
